FAERS Safety Report 9060796 (Version 2)
Quarter: 2013Q2

REPORT INFORMATION
  Report Type: Report from Study
  Country: FR (occurrence: FR)
  Receive Date: 20130204
  Receipt Date: 20130412
  Transmission Date: 20140414
  Serious: Yes (Death, Life-Threatening, Hospitalization)
  Sender: FDA-Public Use
  Company Number: FR-ASTELLAS-2012EU008364

PATIENT
  Age: 72 Year
  Sex: Male
  Weight: 92 kg

DRUGS (6)
  1. BLINDED ENZALUTAMIDE [Suspect]
     Indication: PROSTATE CANCER METASTATIC
     Dosage: 40 MG, QID
     Route: 048
     Dates: start: 20111109, end: 20120224
  2. PRETERAX                           /01421201/ [Concomitant]
     Indication: HYPERTENSION
     Dosage: 2.5 MG, UID/QD
     Route: 048
     Dates: start: 2005, end: 20120225
  3. AMLOR [Concomitant]
     Indication: HYPERTENSION
     Dosage: 5 MG, UID/QD
     Route: 048
     Dates: start: 2005, end: 20120225
  4. ATENOLOL [Concomitant]
     Indication: HYPERTENSION
     Dosage: 50 MG, UID/QD
     Route: 048
     Dates: start: 2005, end: 20120225
  5. TAMSULOSIN [Concomitant]
     Indication: HYPERTROPHY
     Dosage: 0.4 MG, UID/QD
     Route: 048
     Dates: start: 2007, end: 20120225
  6. DECAPEPTYL                         /00486501/ [Concomitant]
     Indication: PROSTATE CANCER
     Dosage: 0.125 MG, OTHER
     Route: 030

REACTIONS (4)
  - Hypovolaemic shock [Recovered/Resolved]
  - Renal failure acute [Not Recovered/Not Resolved]
  - Jaundice cholestatic [Not Recovered/Not Resolved]
  - Hepatic failure [Fatal]
